FAERS Safety Report 16105491 (Version 1)
Quarter: 2019Q1

REPORT INFORMATION
  Report Type: Spontaneous
  Country: DE (occurrence: DE)
  Receive Date: 20190322
  Receipt Date: 20190322
  Transmission Date: 20190418
  Serious: Yes (Hospitalization, Other)
  Sender: FDA-Public Use
  Company Number: DE-TEVA-2019-DE-1026543

PATIENT
  Age: 62 Year
  Sex: Female

DRUGS (6)
  1. VALSARTAN-RATIOPHARM COMP.320 MG/25 MG FILMTABLETTEN [Suspect]
     Active Substance: HYDROCHLOROTHIAZIDE\VALSARTAN
     Indication: HYPERTENSION
     Route: 065
     Dates: start: 20120131
  2. VALSARTAN 320 MG [Suspect]
     Active Substance: VALSARTAN
     Route: 065
     Dates: start: 20170504
  3. VALSARTAN 1A PHARMA 320 MG [Suspect]
     Active Substance: VALSARTAN
     Route: 065
     Dates: start: 20120402
  4. L-THYROXIN 125 MICROGRAM [Concomitant]
     Dosage: 1-0-0
  5. VALSARTAN HEXAL COMP 320 MG/25 MG FILMTABLETTEN [Suspect]
     Active Substance: HYDROCHLOROTHIAZIDE\VALSARTAN
     Route: 048
     Dates: start: 20120516
  6. VALSACOR COMB 320/25 MG [Suspect]
     Active Substance: HYDROCHLOROTHIAZIDE\VALSARTAN
     Route: 065
     Dates: start: 20160213

REACTIONS (1)
  - Bladder cancer [Unknown]

NARRATIVE: CASE EVENT DATE: 201803
